FAERS Safety Report 18334981 (Version 1)
Quarter: 2020Q4

REPORT INFORMATION
  Report Type: Report from Study
  Country: None (occurrence: US)
  Receive Date: 20201001
  Receipt Date: 20201001
  Transmission Date: 20210113
  Serious: Yes (Other)
  Sender: FDA-Public Use
  Company Number: US-BIOVITRUM-2020US4244

PATIENT
  Age: 21 Year
  Sex: Male

DRUGS (1)
  1. KINERET [Suspect]
     Active Substance: ANAKINRA
     Indication: PERICARDITIS CONSTRICTIVE
     Dosage: 100MG/0.67ML
     Route: 058
     Dates: start: 20200807

REACTIONS (4)
  - Off label use [Unknown]
  - Cellulitis [Unknown]
  - Needle issue [Unknown]
  - Syringe issue [Unknown]

NARRATIVE: CASE EVENT DATE: 20200807
